FAERS Safety Report 6433477-0 (Version None)
Quarter: 2009Q4

REPORT INFORMATION
  Report Type: 
  Country: None (occurrence: None)
  Receive Date: 20091106
  Receipt Date: 20091106
  Transmission Date: 20100525
  Serious: Yes (Life-Threatening)
  Sender: FDA-Public Use
  Company Number: None

PATIENT
  Age: 50 Year
  Sex: Male
  Weight: 73.2 kg

DRUGS (14)
  1. DOCETAXEL [Suspect]
     Indication: NON-SMALL CELL LUNG CANCER
     Dosage: 75MG/M2 IV Q21 DAYS
     Dates: start: 20090810
  2. DOCETAXEL [Suspect]
     Indication: NON-SMALL CELL LUNG CANCER
     Dosage: 75MG/M2 IV Q21 DAYS
     Dates: start: 20090831
  3. APRICOXIB/PLACEBO [Suspect]
     Indication: NON-SMALL CELL LUNG CANCER
     Dosage: 400 MG PO DAILY
     Route: 048
     Dates: start: 20090810, end: 20090928
  4. MORPHINE SULFATE [Concomitant]
  5. OXYCODONE [Concomitant]
  6. LOVENOX [Concomitant]
  7. XANAX [Concomitant]
  8. VALIUM [Concomitant]
  9. ALBUTEROL [Concomitant]
  10. DEXAMETHASONE [Concomitant]
  11. DOLASTETRON [Concomitant]
  12. COMPAZINE [Concomitant]
  13. ACETAMINOPHEN [Concomitant]
  14. LIDOCAINE HCL VISCOUS [Concomitant]

REACTIONS (1)
  - UNRESPONSIVE TO STIMULI [None]
